FAERS Safety Report 23251240 (Version 1)
Quarter: 2023Q4

REPORT INFORMATION
  Report Type: Spontaneous
  Country: US (occurrence: US)
  Receive Date: 20231201
  Receipt Date: 20231201
  Transmission Date: 20240109
  Serious: Yes (Other)
  Sender: FDA-Public Use
  Company Number: US-002147023-NVSC2023US251595

PATIENT
  Sex: Female

DRUGS (4)
  1. DABRAFENIB [Suspect]
     Active Substance: DABRAFENIB
     Indication: Mediastinum neoplasm
     Dosage: 150 MG TWICE DAILY
  2. DABRAFENIB [Suspect]
     Active Substance: DABRAFENIB
     Indication: BRAF V600E mutation positive
     Dosage: 75 MG
  3. TRAMETINIB [Suspect]
     Active Substance: TRAMETINIB
     Indication: Mediastinum neoplasm
     Dosage: 2 MG ONCE DAILY
  4. TRAMETINIB [Suspect]
     Active Substance: TRAMETINIB
     Indication: BRAF V600E mutation positive

REACTIONS (4)
  - Malignant neoplasm progression [Unknown]
  - Mediastinum neoplasm [Unknown]
  - Off label use [Unknown]
  - Wrong technique in product usage process [Unknown]
